FAERS Safety Report 16807855 (Version 1)
Quarter: 2019Q3

REPORT INFORMATION
  Report Type: Spontaneous
  Country: JP (occurrence: JP)
  Receive Date: 20190915
  Receipt Date: 20190915
  Transmission Date: 20191005
  Serious: Yes (Other)
  Sender: FDA-Public Use
  Company Number: PHJP2019JP011612

PATIENT
  Age: 65 Year
  Sex: Female
  Weight: 54.6 kg

DRUGS (10)
  1. METGLUCO [Suspect]
     Active Substance: METFORMIN HYDROCHLORIDE
     Indication: TYPE 2 DIABETES MELLITUS
     Dosage: 500 MG, UNK
     Route: 065
  2. GLIBENCLAMIDE [Suspect]
     Active Substance: GLYBURIDE
     Indication: TYPE 2 DIABETES MELLITUS
     Dosage: 5 MG, UNK
     Route: 065
  3. METGLUCO [Suspect]
     Active Substance: METFORMIN HYDROCHLORIDE
     Dosage: 1000 MG, UNK
     Route: 065
  4. GLIBENCLAMIDE [Suspect]
     Active Substance: GLYBURIDE
     Dosage: 2.5 MG, UNK
     Route: 065
  5. METGLUCO [Suspect]
     Active Substance: METFORMIN HYDROCHLORIDE
     Dosage: 750 MG, UNK
     Route: 065
  6. GLIBENCLAMIDE [Suspect]
     Active Substance: GLYBURIDE
     Dosage: 3.75 MG, UNK
     Route: 065
  7. EQUA TAB [Suspect]
     Active Substance: VILDAGLIPTIN
     Indication: TYPE 2 DIABETES MELLITUS
     Dosage: 100 MG, UNK
     Route: 048
  8. GLIBENCLAMIDE [Suspect]
     Active Substance: GLYBURIDE
     Dosage: 1.25 MG, UNK
     Route: 065
  9. REPAGLINIDE. [Concomitant]
     Active Substance: REPAGLINIDE
     Indication: PRODUCT USED FOR UNKNOWN INDICATION
     Dosage: 0.5 MG, UNK
     Route: 065
  10. PIOGLITAZONE TABLETS [Suspect]
     Active Substance: PIOGLITAZONE
     Indication: TYPE 2 DIABETES MELLITUS
     Dosage: 15 MG, UNK
     Route: 048

REACTIONS (4)
  - Hypoglycaemia [Recovered/Resolved]
  - Hypoglycaemic encephalopathy [Recovered/Resolved]
  - Oedema [Recovered/Resolved]
  - Blood lactic acid increased [Recovered/Resolved]
